FAERS Safety Report 6251508-8 (Version None)
Quarter: 2009Q2

REPORT INFORMATION
  Report Type: 
  Country: None (occurrence: None)
  Receive Date: 20090626
  Receipt Date: 20090626
  Transmission Date: 20091009
  Serious: No
  Sender: FDA-Public Use
  Company Number: None

PATIENT
  Age: 33 Year
  Sex: Female
  Weight: 74.8435 kg

DRUGS (1)
  1. ZICAM COLD REMEDY NASAL GEL MATRIXX INITIATIVES [Suspect]
     Indication: UPPER RESPIRATORY TRACT INFECTION
     Dosage: 1 SQUIRT EACH NOSTRIL NASAL
     Route: 045
     Dates: start: 20090526, end: 20090526

REACTIONS (1)
  - ANOSMIA [None]
